FAERS Safety Report 16354860 (Version 1)
Quarter: 2019Q2

REPORT INFORMATION
  Report Type: Spontaneous
  Country: US (occurrence: US)
  Receive Date: 20190524
  Receipt Date: 20190524
  Transmission Date: 20190711
  Serious: Yes (Other)
  Sender: FDA-Public Use
  Company Number: US-COOPERSURGICAL, INC.-US-2019CPS001526

PATIENT
  Sex: Female
  Weight: 62.59 kg

DRUGS (2)
  1. PARAGARD T 380A [Suspect]
     Active Substance: COPPER
     Indication: CONTRACEPTION
     Dosage: UNK
     Route: 015
     Dates: start: 201502, end: 20190514
  2. VITAMINS                           /00067501/ [Concomitant]
     Active Substance: VITAMINS
     Indication: NUTRITIONAL SUPPLEMENTATION
     Dosage: UNK

REACTIONS (12)
  - Pregnancy with contraceptive device [Unknown]
  - Breast tenderness [Unknown]
  - Crying [Unknown]
  - Vaginal discharge [Unknown]
  - Breast enlargement [Unknown]
  - Pain [Unknown]
  - Dysmenorrhoea [Unknown]
  - Abdominal pain [Unknown]
  - Abortion spontaneous [Unknown]
  - Vaginal haemorrhage [Unknown]
  - Breast discomfort [Unknown]
  - Grief reaction [Unknown]
